FAERS Safety Report 7044663-3 (Version None)
Quarter: 2010Q4

REPORT INFORMATION
  Report Type: 
  Country: None (occurrence: None)
  Receive Date: 20101014
  Receipt Date: 20101004
  Transmission Date: 20110411
  Serious: Yes (Other)
  Sender: FDA-Public Use
  Company Number: US-MYLANLABS-2010S1012244

PATIENT
  Age: 21 Year
  Sex: Female

DRUGS (1)
  1. AMNESTEEM [Suspect]
     Route: 048
     Dates: start: 20091207, end: 20100602

REACTIONS (3)
  - DRUG EXPOSURE DURING PREGNANCY [None]
  - PREGNANCY [None]
  - TREATMENT NONCOMPLIANCE [None]
